FAERS Safety Report 23296517 (Version 3)
Quarter: 2024Q1

REPORT INFORMATION
  Report Type: Spontaneous
  Country: UY (occurrence: None)
  Receive Date: 20231214
  Receipt Date: 20240319
  Transmission Date: 20240410
  Serious: Yes (Hospitalization, Other)
  Sender: FDA-Public Use
  Company Number: UY-ROCHE-3470470

PATIENT
  Age: 57 Year
  Sex: Male
  Weight: 78 kg

DRUGS (18)
  1. MABTHERA [Suspect]
     Active Substance: RITUXIMAB
     Indication: Follicular lymphoma
     Route: 041
     Dates: start: 20140319, end: 20140702
  2. MABTHERA [Suspect]
     Active Substance: RITUXIMAB
     Route: 041
     Dates: start: 20201110, end: 20210304
  3. CYCLOPHOSPHAMIDE [Suspect]
     Active Substance: CYCLOPHOSPHAMIDE
     Indication: Follicular lymphoma
     Route: 065
     Dates: start: 20140319, end: 20140702
  4. DOXORUBICIN [Suspect]
     Active Substance: DOXORUBICIN
     Indication: Follicular lymphoma
     Route: 065
     Dates: start: 20140319, end: 20140702
  5. VINCRISTINE [Suspect]
     Active Substance: VINCRISTINE
     Indication: Follicular lymphoma
     Route: 065
     Dates: start: 20140319, end: 20140702
  6. PREDNISONE [Suspect]
     Active Substance: PREDNISONE
     Indication: Follicular lymphoma
     Route: 065
     Dates: start: 20140319, end: 20140702
  7. BENDAMUSTINE [Suspect]
     Active Substance: BENDAMUSTINE
     Indication: Follicular lymphoma
     Route: 065
     Dates: start: 20201110, end: 20210304
  8. GEMCITABINE [Suspect]
     Active Substance: GEMCITABINE
     Indication: Follicular lymphoma
     Route: 065
     Dates: start: 20211207, end: 20211229
  9. DEXAMETHASONE [Suspect]
     Active Substance: DEXAMETHASONE
     Indication: Follicular lymphoma
     Route: 065
     Dates: start: 20211207, end: 20211229
  10. CISPLATIN [Suspect]
     Active Substance: CISPLATIN
     Indication: Follicular lymphoma
     Route: 065
     Dates: start: 20211207, end: 20211229
  11. CYCLOPHOSPHAMIDE [Concomitant]
     Active Substance: CYCLOPHOSPHAMIDE
     Indication: Diffuse large B-cell lymphoma stage IV
     Route: 065
     Dates: start: 20231130
  12. ETOPOSIDE [Concomitant]
     Active Substance: ETOPOSIDE
     Indication: Diffuse large B-cell lymphoma stage IV
     Route: 065
     Dates: start: 20231130
  13. VINCRISTINE [Concomitant]
     Active Substance: VINCRISTINE
     Indication: Diffuse large B-cell lymphoma stage IV
     Route: 065
     Dates: start: 20231130
  14. PREDNISONE [Concomitant]
     Active Substance: PREDNISONE
     Indication: Diffuse large B-cell lymphoma stage IV
     Route: 065
     Dates: start: 20231130
  15. CARMUSTINE [Concomitant]
     Active Substance: CARMUSTINE
     Dates: start: 20220518
  16. ETOPOSIDE [Concomitant]
     Active Substance: ETOPOSIDE
     Dates: start: 20220518
  17. CYTARABINE [Concomitant]
     Active Substance: CYTARABINE
     Dates: start: 20220518
  18. MELPHALAN [Concomitant]
     Active Substance: MELPHALAN
     Dates: start: 20220518

REACTIONS (6)
  - Lymphoma transformation [Unknown]
  - Skin disorder [Unknown]
  - B-cell lymphoma recurrent [Unknown]
  - B-cell lymphoma recurrent [Unknown]
  - COVID-19 [Recovered/Resolved]
  - Respiratory failure [Recovered/Resolved]

NARRATIVE: CASE EVENT DATE: 20161101
